FAERS Safety Report 9280766 (Version 1)
Quarter: 2013Q2

REPORT INFORMATION
  Report Type: Spontaneous
  Country: US (occurrence: US)
  Receive Date: 20130509
  Receipt Date: 20130523
  Transmission Date: 20140414
  Serious: No
  Sender: FDA-Public Use
  Company Number: US-PFIZER INC-2013142934

PATIENT
  Age: 61 Year
  Sex: 0

DRUGS (8)
  1. GABAPENTIN [Suspect]
     Dosage: UNK
  2. ZOLOFT [Suspect]
     Dosage: UNK
  3. ASP [Suspect]
     Dosage: UNK
  4. CARVEDILOL [Suspect]
     Dosage: UNK
  5. CIPRO [Suspect]
     Dosage: UNK
  6. CITALOPRAM [Suspect]
     Dosage: UNK
  7. ERYTHROMYCIN [Suspect]
     Dosage: UNK
  8. DEMEROL [Suspect]
     Dosage: UNK

REACTIONS (1)
  - Drug hypersensitivity [Unknown]
